FAERS Safety Report 22395331 (Version 1)
Quarter: 2023Q2

REPORT INFORMATION
  Report Type: Spontaneous
  Country: US (occurrence: US)
  Receive Date: 20230601
  Receipt Date: 20230601
  Transmission Date: 20230721
  Serious: No
  Sender: FDA-Public Use
  Company Number: US-APIL-2312082US

PATIENT
  Sex: Female
  Weight: 120 kg

DRUGS (13)
  1. UBRELVY [Suspect]
     Active Substance: UBROGEPANT
     Indication: Migraine
  2. NURTEC ODT [Concomitant]
     Active Substance: RIMEGEPANT SULFATE
  3. ALMOTRIPTAN [Concomitant]
     Active Substance: ALMOTRIPTAN
  4. ELETRIPTAN [Concomitant]
     Active Substance: ELETRIPTAN
  5. FROVATRIPTAN [Concomitant]
     Active Substance: FROVATRIPTAN
  6. FIORICET [Concomitant]
     Active Substance: ACETAMINOPHEN\BUTALBITAL\CAFFEINE
  7. SUMATRIPTAN [Concomitant]
     Active Substance: SUMATRIPTAN
  8. ZOLMITRIPTAN [Concomitant]
     Active Substance: ZOLMITRIPTAN
  9. AMITRIPTYLINE [Concomitant]
     Active Substance: AMITRIPTYLINE
  10. ATENOLOL [Concomitant]
     Active Substance: ATENOLOL
  11. DIVALPROEX SODIUM [Concomitant]
     Active Substance: DIVALPROEX SODIUM
  12. METOPROLOL [Concomitant]
     Active Substance: METOPROLOL
  13. TOPIRAMATE [Concomitant]
     Active Substance: TOPIRAMATE

REACTIONS (1)
  - Illness [Unknown]
